FAERS Safety Report 6897030-7 (Version None)
Quarter: 2010Q3

REPORT INFORMATION
  Report Type: 
  Country: None (occurrence: None)
  Receive Date: 20100802
  Receipt Date: 20070409
  Transmission Date: 20110219
  Serious: Yes (Other)
  Sender: FDA-Public Use
  Company Number: US-PFIZER INC-2007004769

PATIENT
  Sex: Female
  Weight: 59 kg

DRUGS (7)
  1. LYRICA [Suspect]
     Indication: DIABETIC NEUROPATHY
     Dates: start: 20061121, end: 20070104
  2. LYRICA [Suspect]
     Indication: NEUROPATHY PERIPHERAL
  3. LYRICA [Suspect]
     Indication: NEURALGIA
  4. SYNTHROID [Concomitant]
  5. ZOCOR [Concomitant]
  6. INSULIN HUMAN [Concomitant]
  7. LENTE INSULIN [Concomitant]

REACTIONS (1)
  - RASH MACULAR [None]
